FAERS Safety Report 23782782 (Version 1)
Quarter: 2024Q2

REPORT INFORMATION
  Report Type: Spontaneous
  Country: US (occurrence: US)
  Receive Date: 20240425
  Receipt Date: 20240425
  Transmission Date: 20240716
  Serious: No
  Sender: FDA-Public Use
  Company Number: US-BAUSCHBL-2024BNL025807

PATIENT
  Age: 76 Year
  Sex: Female

DRUGS (4)
  1. XIIDRA [Suspect]
     Active Substance: LIFITEGRAST
     Indication: Dry eye
     Route: 047
     Dates: start: 20240404
  2. LUMIFY [Suspect]
     Active Substance: BRIMONIDINE TARTRATE
     Indication: Product used for unknown indication
     Route: 065
  3. LUMIFY [Suspect]
     Active Substance: BRIMONIDINE TARTRATE
  4. MINERAL OIL\PARAFFIN [Suspect]
     Active Substance: MINERAL OIL\PARAFFIN
     Indication: Product used for unknown indication
     Dosage: RETAIN COMPLETE MGD
     Route: 065

REACTIONS (7)
  - Ocular hyperaemia [Unknown]
  - Drug ineffective [Unknown]
  - Accidental exposure to product [Unknown]
  - Exposure via skin contact [Unknown]
  - Product closure removal difficult [Unknown]
  - Product use complaint [Unknown]
  - Product container issue [Unknown]

NARRATIVE: CASE EVENT DATE: 20240401
